FAERS Safety Report 25316689 (Version 9)
Quarter: 2025Q4

REPORT INFORMATION
  Report Type: Spontaneous
  Country: US (occurrence: US)
  Receive Date: 20250515
  Receipt Date: 20251218
  Transmission Date: 20260117
  Serious: Yes (Hospitalization, Other)
  Sender: UNITED THERAPEUTICS
  Company Number: US-UNITED THERAPEUTICS-UNT-2025-016412

PATIENT
  Sex: Male

DRUGS (7)
  1. TYVASO [Suspect]
     Active Substance: TREPROSTINIL
     Indication: Pulmonary hypertension
     Dosage: 60 ?G, QID
     Dates: start: 2025, end: 2025
  2. TYVASO [Suspect]
     Active Substance: TREPROSTINIL
     Indication: Pulmonary fibrosis
     Dosage: UNK [UP TO 12 BREATHS]
  3. TYVASO [Suspect]
     Active Substance: TREPROSTINIL
     Dosage: 42 ?G, QID [REDUCED DOSE]
     Dates: start: 2025, end: 2025
  4. TYVASO [Suspect]
     Active Substance: TREPROSTINIL
     Dosage: 72 ?G, QID
     Dates: start: 2025
  5. TYVASO [Suspect]
     Active Substance: TREPROSTINIL
     Dosage: UNK
  6. OXYGEN [Concomitant]
     Active Substance: OXYGEN
     Indication: Dyspnoea
     Dosage: 5 L
  7. OXYGEN [Concomitant]
     Active Substance: OXYGEN
     Dosage: 6 L

REACTIONS (9)
  - Neoplasm malignant [Unknown]
  - Pneumonia bacterial [Recovering/Resolving]
  - Blood test abnormal [Not Recovered/Not Resolved]
  - Cough [Recovered/Resolved]
  - Dyspnoea [Unknown]
  - Oedema [Unknown]
  - Asthenia [Unknown]
  - General physical health deterioration [Unknown]
  - Drug tolerance decreased [Recovered/Resolved]

NARRATIVE: CASE EVENT DATE: 20250101
